FAERS Safety Report 7522848-7 (Version None)
Quarter: 2011Q2

REPORT INFORMATION
  Report Type: 
  Country: None (occurrence: None)
  Receive Date: 20110603
  Receipt Date: 20110526
  Transmission Date: 20111010
  Serious: Yes (Hospitalization)
  Sender: FDA-Public Use
  Company Number: DE-MEDIMMUNE-MEDI-0013250

PATIENT
  Sex: Female
  Weight: 1.049 kg

DRUGS (9)
  1. COLECALCIFEROL [Concomitant]
     Route: 048
     Dates: start: 20101120
  2. COLECALCIFEROL [Concomitant]
     Route: 048
     Dates: start: 20101120
  3. SODIUM CHLORIDE [Concomitant]
     Dosage: 5.85%, 8X1.5 ML
     Route: 048
     Dates: start: 20101203
  4. IBUPROFEN [Concomitant]
     Route: 048
     Dates: start: 20101120
  5. SYNAGIS [Suspect]
     Route: 030
  6. IBUPROFEN [Concomitant]
  7. SPIRONOLACTONE [Concomitant]
     Route: 048
     Dates: start: 20101120
  8. SODIUM CHLORIDE [Concomitant]
     Route: 048
     Dates: start: 20101120
  9. SPIRONOLACTONE [Concomitant]
     Indication: BRONCHOPULMONARY DYSPLASIA
     Route: 048
     Dates: start: 20101123

REACTIONS (3)
  - MYOCLONUS [None]
  - PYREXIA [None]
  - CONVULSION [None]
